FAERS Safety Report 6210719-8 (Version None)
Quarter: 2009Q2

REPORT INFORMATION
  Report Type: 
  Country: None (occurrence: None)
  Receive Date: 20090601
  Receipt Date: 20090526
  Transmission Date: 20091009
  Serious: Yes (Other)
  Sender: FDA-Public Use
  Company Number: US-ASTRAZENECA-2009UW13405

PATIENT
  Age: 52 Year
  Sex: Female
  Weight: 94.8 kg

DRUGS (2)
  1. NEXIUM [Suspect]
     Route: 048
     Dates: start: 20081001
  2. BYETTA [Concomitant]
     Indication: DIABETES MELLITUS

REACTIONS (1)
  - JOINT ARTHROPLASTY [None]
